FAERS Safety Report 15036739 (Version 4)
Quarter: 2018Q4

REPORT INFORMATION
  Report Type: Spontaneous
  Country: JP (occurrence: JP)
  Receive Date: 20180620
  Receipt Date: 20181009
  Transmission Date: 20190204
  Serious: Yes (Death, Hospitalization)
  Sender: FDA-Public Use
  Company Number: JP-UCBSA-2018026048

PATIENT
  Age: 70 Year
  Sex: Male
  Weight: 71 kg

DRUGS (14)
  1. CIMZIA [Suspect]
     Active Substance: CERTOLIZUMAB PEGOL
     Dosage: 400 MG, EV 4 WEEKS
     Route: 058
     Dates: start: 20180320, end: 20180417
  2. ISCOTIN [Concomitant]
     Active Substance: ISONIAZID
     Indication: PULMONARY TUBERCULOSIS
     Route: 048
     Dates: start: 20170417, end: 20171017
  3. PREDNISOLONE. [Concomitant]
     Active Substance: PREDNISOLONE
     Indication: PRODUCT USED FOR UNKNOWN INDICATION
     Dosage: 5 MG, ONCE DAILY (QD)
     Route: 048
     Dates: start: 20170410, end: 20170702
  4. PREDNISOLONE. [Concomitant]
     Active Substance: PREDNISOLONE
     Indication: RHEUMATOID ARTHRITIS
     Dosage: 2.5 MG, ONCE DAILY (QD)
     Route: 048
     Dates: start: 20170703, end: 20180525
  5. CIMZIA [Suspect]
     Active Substance: CERTOLIZUMAB PEGOL
     Indication: RHEUMATOID ARTHRITIS
     Dosage: 400 MG, EV 2 WEEKS(QOW)
     Route: 058
     Dates: start: 20171024, end: 20171121
  6. METOLATE [Suspect]
     Active Substance: METHOTREXATE
     Indication: PRODUCT USED FOR UNKNOWN INDICATION
     Dosage: 10 MG, WEEKLY (QW)
     Route: 048
     Dates: end: 20180510
  7. RHEUMATREX [Concomitant]
     Active Substance: METHOTREXATE SODIUM
     Indication: RHEUMATOID ARTHRITIS
     Dosage: 10 MG, WEEKLY (QW)
     Route: 048
     Dates: start: 20170919, end: 20180518
  8. FOLIAMIN [Concomitant]
     Active Substance: FOLIC ACID
     Indication: PRODUCT USED FOR UNKNOWN INDICATION
     Dosage: 5 MG, WEEKLY (QW)
     Route: 048
     Dates: start: 20170817, end: 20180518
  9. FOLIAMIN [Concomitant]
     Active Substance: FOLIC ACID
     Indication: FOLATE DEFICIENCY
  10. AZULFIDINE EN-TABS [Concomitant]
     Active Substance: SULFASALAZINE
     Indication: RHEUMATOID ARTHRITIS
     Route: 048
     Dates: start: 20170403, end: 20170807
  11. LOXONIN [Concomitant]
     Active Substance: LOXOPROFEN SODIUM
     Indication: RHEUMATOID ARTHRITIS
     Route: 048
     Dates: start: 20170408, end: 20170703
  12. CIMZIA [Suspect]
     Active Substance: CERTOLIZUMAB PEGOL
     Dosage: 200 MG, EV 2 WEEKS(QOW)
     Route: 058
     Dates: start: 20171205, end: 20180306
  13. RHEUMATREX [Concomitant]
     Active Substance: METHOTREXATE SODIUM
     Indication: PRODUCT USED FOR UNKNOWN INDICATION
     Dosage: 8 MG, WEEKLY (QW)
     Route: 048
     Dates: start: 20170807, end: 20170904
  14. CYTOTEC [Concomitant]
     Active Substance: MISOPROSTOL
     Indication: GASTRIC ULCER
     Route: 048
     Dates: start: 20170403, end: 20170703

REACTIONS (1)
  - Pulmonary tuberculosis [Fatal]

NARRATIVE: CASE EVENT DATE: 20180518
